FAERS Safety Report 7112693-9 (Version None)
Quarter: 2010Q4

REPORT INFORMATION
  Report Type: 
  Country: None (occurrence: None)
  Receive Date: 20101119
  Receipt Date: 20101108
  Transmission Date: 20110411
  Serious: Yes (Other)
  Sender: FDA-Public Use
  Company Number: PHHY2010US76148

PATIENT
  Age: 40 Year
  Sex: Female

DRUGS (3)
  1. RITALIN [Suspect]
  2. ZOLOFT [Suspect]
     Indication: ANXIETY
     Dosage: UNK
  3. PAXIL [Suspect]
     Indication: ANXIETY

REACTIONS (2)
  - CARCINOID TUMOUR OF THE GASTROINTESTINAL TRACT [None]
  - SURGERY [None]
